FAERS Safety Report 6788370-0 (Version None)
Quarter: 2010Q2

REPORT INFORMATION
  Report Type: 
  Country: None (occurrence: None)
  Receive Date: 20100623
  Receipt Date: 20090331
  Transmission Date: 20101027
  Serious: Yes (Other)
  Sender: FDA-Public Use
  Company Number: US-PFIZER INC-2008001897

PATIENT
  Sex: Female
  Weight: 86 kg

DRUGS (20)
  1. PROVERA [Suspect]
     Indication: HORMONE REPLACEMENT THERAPY
     Dosage: UNK
     Route: 048
     Dates: start: 19930101, end: 20020211
  2. PROVERA [Suspect]
     Indication: MENOPAUSE
  3. PREMARIN [Suspect]
     Indication: HORMONE REPLACEMENT THERAPY
     Dosage: UNK
     Route: 048
     Dates: start: 19830101, end: 19921105
  4. PREMARIN [Suspect]
     Indication: MENOPAUSE
  5. PREMPRO [Suspect]
     Indication: HORMONE REPLACEMENT THERAPY
     Route: 048
     Dates: start: 19880101, end: 20020101
  6. ESTRACE [Suspect]
     Indication: HORMONE REPLACEMENT THERAPY
     Dosage: 0.1 MG, 1X/DAY
     Route: 065
     Dates: start: 19921105, end: 19930318
  7. ESTRACE [Suspect]
     Indication: MENOPAUSE
  8. CLIMARA [Suspect]
     Indication: HORMONE REPLACEMENT THERAPY
     Dosage: 0.1 MG, UNK
     Dates: start: 19980801, end: 19981101
  9. CLIMARA [Suspect]
     Indication: MENOPAUSE
  10. ESTRADERM [Suspect]
     Indication: HORMONE REPLACEMENT THERAPY
     Dosage: UNK
     Route: 062
     Dates: start: 19930318, end: 20011217
  11. ESTRADERM [Suspect]
     Indication: MENOPAUSE
  12. VIVELLE [Suspect]
     Indication: HORMONE REPLACEMENT THERAPY
     Dosage: UNK
     Route: 062
     Dates: start: 20011217, end: 20020211
  13. VIVELLE [Suspect]
     Indication: MENOPAUSE
  14. LEVOTHYROXINE [Concomitant]
     Indication: THYROID DISORDER
     Dosage: UNK
     Dates: start: 19800101
  15. WELLBUTRIN [Concomitant]
     Indication: SENSORY DISTURBANCE
     Dosage: UNK
     Dates: start: 19990101
  16. SYNTHROID [Concomitant]
     Indication: THYROID DISORDER
     Dosage: UNK
     Dates: start: 19960101
  17. XALATAN [Concomitant]
     Indication: GLAUCOMA
     Dosage: UNK
     Dates: start: 19970101, end: 20060101
  18. LIPITOR [Concomitant]
     Indication: BLOOD CHOLESTEROL
     Dosage: UNK
     Dates: start: 20000101, end: 20050101
  19. AZOPT [Concomitant]
     Indication: GLAUCOMA
     Dosage: UNK
     Dates: start: 19980101, end: 20060101
  20. METFORMIN HYDROCHLORIDE [Concomitant]
     Indication: DIABETES MELLITUS
     Dosage: UNK
     Dates: start: 19910101

REACTIONS (1)
  - BREAST CANCER FEMALE [None]
